FAERS Safety Report 7656971-3 (Version None)
Quarter: 2011Q3

REPORT INFORMATION
  Report Type: 
  Country: None (occurrence: None)
  Receive Date: 20110804
  Receipt Date: 20110726
  Transmission Date: 20111222
  Serious: Yes (Life-Threatening, Hospitalization)
  Sender: FDA-Public Use
  Company Number: JP-PFIZER INC-2011134064

PATIENT
  Age: 81 Year
  Sex: Male

DRUGS (7)
  1. PILSICAINIDE HYDROCHLORIDE [Concomitant]
     Dosage: 50 MG/DAY
     Route: 048
  2. HERBAL PREPARATION [Suspect]
     Dosage: 7.5 G/DAY
     Route: 048
     Dates: start: 20110527, end: 20110609
  3. ZOSYN [Suspect]
     Indication: PNEUMONIA
     Dosage: 4.5 G, 3X/DAY
     Route: 041
     Dates: start: 20110530, end: 20110609
  4. TAMSULOSIN HYDROCHLORIDE [Concomitant]
     Dosage: 0.2 MG, 1X/DAY
     Route: 048
     Dates: end: 20110613
  5. NORVASC [Concomitant]
     Dosage: 2.5 MG/DAY
     Route: 048
     Dates: end: 20110613
  6. LEVOFLOXACIN [Suspect]
     Indication: PNEUMONIA
     Dosage: 500 MG/DAY
     Route: 048
     Dates: start: 20110530, end: 20110609
  7. URINORM [Concomitant]
     Dosage: 50 MG, 1X/DAY
     Route: 048
     Dates: end: 20110613

REACTIONS (1)
  - INTERSTITIAL LUNG DISEASE [None]
